FAERS Safety Report 12598707 (Version 4)
Quarter: 2016Q3

REPORT INFORMATION
  Report Type: Spontaneous
  Country: KR (occurrence: KR)
  Receive Date: 20160727
  Receipt Date: 20160819
  Transmission Date: 20161109
  Serious: Yes (Death, Hospitalization, Other)
  Sender: FDA-Public Use
  Company Number: KR-JNJFOC-20160716918

PATIENT
  Sex: Male
  Weight: 64.2 kg

DRUGS (2)
  1. BARACLUDE [Concomitant]
     Active Substance: ENTECAVIR
     Indication: PROPHYLAXIS
     Route: 048
  2. IMBRUVICA [Suspect]
     Active Substance: IBRUTINIB
     Indication: MANTLE CELL LYMPHOMA
     Route: 048
     Dates: start: 20160624

REACTIONS (4)
  - Ascites [Not Recovered/Not Resolved]
  - Splenomegaly [Not Recovered/Not Resolved]
  - Atypical pneumonia [Fatal]
  - Lymphocytosis [Unknown]
